FAERS Safety Report 10667690 (Version 2)
Quarter: 2015Q2

REPORT INFORMATION
  Report Type: Report from Study
  Country: US (occurrence: US)
  Receive Date: 20141222
  Receipt Date: 20150417
  Transmission Date: 20150821
  Serious: Yes (Other)
  Sender: FDA-Public Use
  Company Number: US-GLAXOSMITHKLINE INC.-US2014GSK031780

PATIENT
  Age: 54 Year
  Sex: Female

DRUGS (5)
  1. TRAMETINIB [Suspect]
     Active Substance: TRAMETINIB
     Indication: CERVIX CARCINOMA
     Dosage: 1.5 MG, QD
     Route: 048
     Dates: start: 20141124
  2. GSK2141795 [Suspect]
     Active Substance: UPROSERTIB
     Indication: CERVIX CARCINOMA
     Dosage: 50 MG, QD
     Route: 048
     Dates: start: 20141124
  3. PRILOSEC [Concomitant]
     Active Substance: OMEPRAZOLE MAGNESIUM
  4. AVAPRO [Concomitant]
     Active Substance: IRBESARTAN
  5. COMPAZINE [Concomitant]
     Active Substance: PROCHLORPERAZINE MALEATE

REACTIONS (1)
  - Detachment of retinal pigment epithelium [Recovered/Resolved]

NARRATIVE: CASE EVENT DATE: 20141202
